FAERS Safety Report 8333147-8 (Version None)
Quarter: 2012Q2

REPORT INFORMATION
  Report Type: 
  Country: None (occurrence: None)
  Receive Date: 20120503
  Receipt Date: 20120423
  Transmission Date: 20120825
  Serious: Yes (Other)
  Sender: FDA-Public Use
  Company Number: US-PFIZER INC-2012104641

PATIENT
  Sex: Female

DRUGS (4)
  1. WELLBUTRIN [Concomitant]
     Dosage: 100 MG, 3X/DAY (TAKE 1 TABLE THREE TIMES A DAY X 90 DAYS, DISP. 270 RFL #3)
  2. EFFEXOR XR [Suspect]
     Dosage: 150 MG CAPSULE TAKE TWO (300 MG), 1X/DAY
  3. LISDEXAMFETAMINE [Concomitant]
     Dosage: 50 MG, 1X/DAY (TAKE 1 CAPSULE EVERY MORNING X 30 DAYS, DISP. 30 NR)
  4. EFFEXOR XR [Suspect]
     Dosage: 75 MG, 1X/DAY

REACTIONS (3)
  - ANXIETY [None]
  - ATTENTION DEFICIT/HYPERACTIVITY DISORDER [None]
  - MAJOR DEPRESSION [None]
